FAERS Safety Report 15598713 (Version 1)
Quarter: 2018Q4

REPORT INFORMATION
  Report Type: Spontaneous
  Country: US (occurrence: US)
  Receive Date: 20181108
  Receipt Date: 20181108
  Transmission Date: 20190205
  Serious: No
  Sender: FDA-Public Use
  Company Number: US-BAYER-2018-205701

PATIENT
  Age: 99 Year
  Sex: Female
  Weight: 53.97 kg

DRUGS (1)
  1. LOTRIMIN ULTRA ANTIFUNGAL [Suspect]
     Active Substance: BUTENAFINE HYDROCHLORIDE
     Indication: RASH
     Dosage: UNK
     Route: 061

REACTIONS (3)
  - Off label use [None]
  - Drug ineffective for unapproved indication [Unknown]
  - Product use in unapproved indication [None]
